FAERS Safety Report 25649735 (Version 1)
Quarter: 2025Q3

REPORT INFORMATION
  Report Type: Report from Study
  Country: US (occurrence: US)
  Receive Date: 20250806
  Receipt Date: 20250806
  Transmission Date: 20251020
  Serious: Yes (Hospitalization)
  Sender: ALEXION PHARMACEUTICALS
  Company Number: US-ASTRAZENECA-202507USA029064US

PATIENT
  Age: 72 Year
  Sex: Female

DRUGS (1)
  1. STRENSIQ [Suspect]
     Active Substance: ASFOTASE ALFA
     Indication: Phosphorus metabolism disorder
     Dosage: 114 MILLIGRAM, TIW
     Route: 065

REACTIONS (3)
  - Palpitations [Recovering/Resolving]
  - Heart rate irregular [Recovering/Resolving]
  - Needle issue [Recovering/Resolving]
